FAERS Safety Report 17639018 (Version 5)
Quarter: 2022Q1

REPORT INFORMATION
  Report Type: Report from Study
  Country: US (occurrence: US)
  Receive Date: 20200407
  Receipt Date: 20220119
  Transmission Date: 20220423
  Serious: Yes (Other)
  Sender: FDA-Public Use
  Company Number: None

PATIENT
  Sex: Male

DRUGS (1)
  1. COSENTYX [Suspect]
     Active Substance: SECUKINUMAB
     Indication: Psoriasis
     Dosage: UNK
     Route: 058

REACTIONS (5)
  - Wound haemorrhage [Unknown]
  - Condition aggravated [Unknown]
  - Psoriasis [Unknown]
  - Product dose omission issue [Unknown]
  - Drug ineffective [Unknown]
